FAERS Safety Report 9793367 (Version 1)
Quarter: 2014Q1

REPORT INFORMATION
  Report Type: Spontaneous
  Country: FR (occurrence: FR)
  Receive Date: 20140102
  Receipt Date: 20140102
  Transmission Date: 20141002
  Serious: Yes (Hospitalization)
  Sender: FDA-Public Use
  Company Number: FR-PFIZER INC-2013371232

PATIENT
  Age: 52 Year
  Sex: Male

DRUGS (11)
  1. TAHOR [Suspect]
     Dosage: UNK
     Route: 048
     Dates: start: 20130910
  2. CLOZAPINE [Suspect]
     Dosage: 25 MG, DAILY
     Route: 048
     Dates: start: 20131105
  3. CLOZAPINE [Suspect]
     Dosage: 75 MG, DAILY
     Route: 048
     Dates: start: 20131115
  4. CLOZAPINE [Suspect]
     Dosage: 100 MG, DAILY
     Route: 048
     Dates: start: 20131118
  5. CLOZAPINE [Suspect]
     Dosage: 150 MG, DAILY
     Route: 048
     Dates: start: 20131119
  6. CLOZAPINE [Suspect]
     Dosage: 200 MG, DAILY
     Route: 048
     Dates: start: 20131127
  7. CLOZAPINE [Suspect]
     Dosage: 250 MG, DAILY
     Route: 048
     Dates: start: 20131203
  8. HYDROXYZINE HYDROCHLORIDE [Suspect]
     Dosage: 300 MG, DAILY
     Route: 048
     Dates: start: 20131115
  9. LORAZEPAM [Suspect]
     Dosage: 5 MG, DAILY
     Route: 048
     Dates: start: 20131106
  10. TERALITHE [Suspect]
     Dosage: 400 MG, DAILY
     Route: 048
     Dates: start: 20131010
  11. VALPROATE SODIUM [Suspect]
     Dosage: 1000 MG, DAILY
     Route: 048
     Dates: start: 20130925

REACTIONS (1)
  - Leukocytosis [Recovered/Resolved]
